FAERS Safety Report 7366879-9 (Version None)
Quarter: 2011Q1

REPORT INFORMATION
  Report Type: 
  Country: None (occurrence: None)
  Receive Date: 20110322
  Receipt Date: 20110302
  Transmission Date: 20110831
  Serious: Yes (Other)
  Sender: FDA-Public Use
  Company Number: A0916350A

PATIENT
  Age: 65 Year
  Sex: Female

DRUGS (2)
  1. COREG CR [Suspect]
     Dosage: 12.5MG TWICE PER DAY
     Route: 048
     Dates: start: 20100201
  2. LISINOPRIL [Concomitant]

REACTIONS (3)
  - TRANSMISSION OF AN INFECTIOUS AGENT VIA A MEDICINAL PRODUCT [None]
  - DRUG ADMINISTRATION ERROR [None]
  - BLISTER [None]
